FAERS Safety Report 6980305-0 (Version None)
Quarter: 2010Q3

REPORT INFORMATION
  Report Type: 
  Country: None (occurrence: None)
  Receive Date: 20100914
  Receipt Date: 20100901
  Transmission Date: 20110219
  Serious: Yes (Death, Hospitalization)
  Sender: FDA-Public Use
  Company Number: DE-ROCHE-725457

PATIENT
  Age: 45 Year
  Sex: Male

DRUGS (5)
  1. DACLIZUMAB [Suspect]
     Indication: GRAFT VERSUS HOST DISEASE
     Route: 065
  2. CYCLOSPORINE [Suspect]
     Indication: GRAFT VERSUS HOST DISEASE
     Route: 065
  3. METHYLPREDNISOLONE [Suspect]
     Indication: GRAFT VERSUS HOST DISEASE
     Route: 065
  4. ANTI-THYMOCYTE GLOBULIN NOS [Suspect]
     Indication: THROMBOTIC MICROANGIOPATHY
     Route: 065
  5. PENTOSTATIN [Suspect]
     Indication: GRAFT VERSUS HOST DISEASE
     Route: 065

REACTIONS (6)
  - CEREBRAL DISORDER [None]
  - FUNGAL INFECTION [None]
  - LUNG INFILTRATION [None]
  - MUCORMYCOSIS [None]
  - PARESIS CRANIAL NERVE [None]
  - ZYGOMYCOSIS [None]
